FAERS Safety Report 13572083 (Version 1)
Quarter: 2017Q2

REPORT INFORMATION
  Report Type: Spontaneous
  Country: US (occurrence: US)
  Receive Date: 20170523
  Receipt Date: 20170523
  Transmission Date: 20170830
  Serious: Yes (Hospitalization)
  Sender: FDA-Public Use
  Company Number: None

PATIENT
  Age: 76 Year
  Sex: Female
  Weight: 88.53 kg

DRUGS (14)
  1. ALBUTEROL INHALER [Concomitant]
     Active Substance: ALBUTEROL
  2. LEVAQUIN [Suspect]
     Active Substance: LEVOFLOXACIN
     Indication: RESPIRATORY SYNCYTIAL VIRUS INFECTION
     Dosage: EVERY 24 HOURS - RENAL DOSE IV
     Route: 042
     Dates: start: 20170416, end: 20170418
  3. LEVOTHYROXINE. [Concomitant]
     Active Substance: LEVOTHYROXINE
  4. POTASSIUM [Concomitant]
     Active Substance: POTASSIUM
  5. VITAMIN D [Concomitant]
     Active Substance: CHOLECALCIFEROL
  6. ZOFRAN [Concomitant]
     Active Substance: ONDANSETRON HYDROCHLORIDE
  7. NOVOLOG [Concomitant]
     Active Substance: INSULIN ASPART
  8. ZYRTEC [Concomitant]
     Active Substance: CETIRIZINE HYDROCHLORIDE
  9. METOLAZONE. [Concomitant]
     Active Substance: METOLAZONE
  10. BUMETANIDE. [Concomitant]
     Active Substance: BUMETANIDE
  11. DEXAMETHASONE. [Concomitant]
     Active Substance: DEXAMETHASONE
  12. PREDNISONE. [Concomitant]
     Active Substance: PREDNISONE
  13. FOSINOPRIL [Concomitant]
     Active Substance: FOSINOPRIL
  14. SIMVASTATIN. [Concomitant]
     Active Substance: SIMVASTATIN

REACTIONS (4)
  - Hypoacusis [None]
  - Tremor [None]
  - Dysgraphia [None]
  - Tendonitis [None]

NARRATIVE: CASE EVENT DATE: 20170417
